FAERS Safety Report 8117922-0 (Version None)
Quarter: 2012Q1

REPORT INFORMATION
  Report Type: 
  Country: None (occurrence: None)
  Receive Date: 20120207
  Receipt Date: 20120130
  Transmission Date: 20120608
  Serious: Yes (Other)
  Sender: FDA-Public Use
  Company Number: US-VERTEX PHARMACEUTICALS INC.-AE-2012-001550

PATIENT
  Sex: Female

DRUGS (12)
  1. PHENERGAN [Concomitant]
  2. MULTI-VITAMIN [Concomitant]
  3. SYNTHROID [Concomitant]
  4. INCIVEK [Suspect]
     Indication: HEPATITIS C
     Route: 048
     Dates: end: 20120125
  5. ADDERALL 5 [Concomitant]
  6. RIBAVIRIN [Concomitant]
     Indication: HEPATITIS C
     Route: 048
     Dates: end: 20120125
  7. PAXIL [Concomitant]
  8. PEGASYS [Concomitant]
     Indication: HEPATITIS C
     Route: 058
     Dates: end: 20120125
  9. INVEGA [Concomitant]
  10. SUBOXONE [Concomitant]
  11. LISINOPRIL [Concomitant]
  12. PROTONIX [Concomitant]

REACTIONS (4)
  - DRUG INTERACTION [None]
  - RENAL FAILURE [None]
  - DEHYDRATION [None]
  - SOMNOLENCE [None]
